FAERS Safety Report 9113084 (Version 1)
Quarter: 2013Q1

REPORT INFORMATION
  Report Type: Report from Study
  Country: US (occurrence: US)
  Receive Date: 20130211
  Receipt Date: 20130211
  Transmission Date: 20140127
  Serious: Yes (Hospitalization)
  Sender: FDA-Public Use
  Company Number: US-ROCHE-1186988

PATIENT
  Age: 65 Year
  Sex: Male

DRUGS (20)
  1. BEVACIZUMAB [Suspect]
     Indication: COLORECTAL CANCER METASTATIC
     Route: 042
     Dates: start: 20121016
  2. OXALIPLATIN [Suspect]
     Indication: COLORECTAL CANCER METASTATIC
     Route: 042
     Dates: start: 20121016
  3. LEUCOVORIN CALCIUM [Suspect]
     Indication: COLORECTAL CANCER METASTATIC
     Route: 042
     Dates: start: 20121016
  4. 5-FLUOROURACIL [Suspect]
     Indication: COLORECTAL CANCER METASTATIC
     Dosage: BOLUS
     Route: 042
     Dates: start: 20121016
  5. 5-FLUOROURACIL [Suspect]
     Route: 042
     Dates: start: 20121016
  6. LOPRESOR [Concomitant]
     Route: 065
     Dates: start: 201209
  7. PROCHLORPERAZINE MALEATE [Concomitant]
  8. ZOFRAN [Concomitant]
     Route: 065
     Dates: start: 20121019
  9. IMODIUM [Concomitant]
     Route: 065
     Dates: start: 20121031
  10. VITAMIN C [Concomitant]
     Route: 065
     Dates: start: 1990
  11. TYLENOL [Concomitant]
     Route: 065
  12. ALOXI [Concomitant]
     Route: 065
     Dates: start: 20121019
  13. DECADRON [Concomitant]
     Route: 065
     Dates: start: 20121016
  14. FERAHEME [Concomitant]
     Route: 065
     Dates: start: 20120906
  15. CLARITIN-D [Concomitant]
     Route: 065
     Dates: start: 20121116
  16. NEULASTA [Concomitant]
     Route: 065
     Dates: start: 20121206
  17. AZITHROMYCIN [Concomitant]
     Route: 065
     Dates: start: 20121231
  18. BMX RINSE (BENADRYL, MAALOX, XYLOCAINE) [Concomitant]
     Route: 065
     Dates: start: 20130104, end: 20130105
  19. DIFLUCAN [Concomitant]
     Route: 065
     Dates: start: 20130108
  20. HEPARIN SODIUM [Concomitant]
     Route: 065
     Dates: start: 20130108

REACTIONS (1)
  - Blood creatinine increased [Not Recovered/Not Resolved]
